FAERS Safety Report 8271814-5 (Version None)
Quarter: 2012Q2

REPORT INFORMATION
  Report Type: 
  Country: None (occurrence: None)
  Receive Date: 20120410
  Receipt Date: 20110829
  Transmission Date: 20120825
  Serious: No
  Sender: FDA-Public Use
  Company Number: US-BAUSCH-2011BL005806

PATIENT
  Age: 38 Year
  Sex: Female

DRUGS (3)
  1. POLYMYXIN B SULFATES AND TRIMETHOPRIM SULFATE [Suspect]
     Indication: OFF LABEL USE
     Route: 047
     Dates: start: 20110827, end: 20110828
  2. POLYMYXIN B SULFATES AND TRIMETHOPRIM SULFATE [Suspect]
     Indication: HORDEOLUM
     Route: 047
     Dates: start: 20110827, end: 20110828
  3. METFORMIN HCL [Concomitant]

REACTIONS (5)
  - EYELID OEDEMA [None]
  - EYELID MARGIN CRUSTING [None]
  - EYE PRURITUS [None]
  - OCULAR HYPERAEMIA [None]
  - DRUG HYPERSENSITIVITY [None]
